FAERS Safety Report 22241449 (Version 1)
Quarter: 2023Q2

REPORT INFORMATION
  Report Type: Spontaneous
  Country: US (occurrence: US)
  Receive Date: 20230421
  Receipt Date: 20230421
  Transmission Date: 20230722
  Serious: No
  Sender: FDA-Public Use
  Company Number: US-002147023-NVSC2023US090102

PATIENT
  Sex: Female

DRUGS (3)
  1. FEMARA [Suspect]
     Active Substance: LETROZOLE
     Indication: Breast cancer metastatic
     Dosage: UNK
     Route: 065
  2. IBRANCE [Suspect]
     Active Substance: PALBOCICLIB
     Indication: Breast cancer metastatic
     Dosage: 62.5 MG, QD (125 MG TABLET EVERY OTHER DAY)
     Route: 065
     Dates: start: 20230201
  3. LISINOPRIL [Concomitant]
     Active Substance: LISINOPRIL
     Indication: Product used for unknown indication
     Dosage: 15 MG, BID (TABLET BY MOUTH)
     Route: 048

REACTIONS (4)
  - Oral pain [Recovered/Resolved]
  - Hypersensitivity [Unknown]
  - Rash [Unknown]
  - Pruritus [Not Recovered/Not Resolved]
